FAERS Safety Report 22609389 (Version 1)
Quarter: 2023Q2

REPORT INFORMATION
  Report Type: Spontaneous
  Country: US (occurrence: US)
  Receive Date: 20230616
  Receipt Date: 20230616
  Transmission Date: 20230722
  Serious: No
  Sender: FDA-Public Use
  Company Number: US-002147023-NVSC2023US138085

PATIENT
  Sex: Female

DRUGS (2)
  1. TAFINLAR [Suspect]
     Active Substance: DABRAFENIB MESYLATE
     Indication: Brain neoplasm malignant
     Dosage: 50 MG, (TAKE 1 CAPSULE BY MOUTH BY EVERY MONDAY, WEDNESDAY, FRIDAY AND 1 CAPSULE TWICE A DAILY ON TU
     Route: 065
     Dates: start: 202303
  2. MEKINIST [Suspect]
     Active Substance: TRAMETINIB DIMETHYL SULFOXIDE
     Indication: Brain neoplasm malignant
     Dosage: 0.5 MG, QD
     Route: 065
     Dates: start: 202303

REACTIONS (1)
  - Mood altered [Unknown]
